FAERS Safety Report 25282057 (Version 2)
Quarter: 2025Q2

REPORT INFORMATION
  Report Type: Spontaneous
  Country: FR (occurrence: FR)
  Receive Date: 20250508
  Receipt Date: 20250521
  Transmission Date: 20250716
  Serious: Yes (Other)
  Sender: TEVA
  Company Number: FR-TEVA-VS-3327689

PATIENT
  Age: 86 Year
  Sex: Male

DRUGS (1)
  1. CIPROFLOXACIN [Suspect]
     Active Substance: CIPROFLOXACIN
     Indication: Osteomyelitis
     Route: 065

REACTIONS (5)
  - Hallucination [Recovered/Resolved]
  - Insomnia [Recovered/Resolved]
  - Confusional state [Recovered/Resolved]
  - Paranoia [Recovered/Resolved]
  - Partial seizures [Recovered/Resolved]
